FAERS Safety Report 5025944-1 (Version None)
Quarter: 2006Q2

REPORT INFORMATION
  Report Type: 
  Country: None (occurrence: None)
  Receive Date: 20060614
  Receipt Date: 20060607
  Transmission Date: 20061013
  Serious: Yes (Life-Threatening)
  Sender: FDA-Public Use
  Company Number: IT-GLAXOSMITHKLINE-B0427389A

PATIENT
  Age: 67 Year
  Sex: Female

DRUGS (1)
  1. ONDANSETRON HCL [Suspect]
     Indication: PROPHYLAXIS OF NAUSEA AND VOMITING
     Route: 042
     Dates: start: 20060509, end: 20060509

REACTIONS (5)
  - ABDOMINAL PAIN [None]
  - BRONCHOSPASM [None]
  - CHEST PAIN [None]
  - URTICARIA [None]
  - VOMITING [None]
